FAERS Safety Report 5312076-8 (Version None)
Quarter: 2007Q2

REPORT INFORMATION
  Report Type: 
  Country: None (occurrence: None)
  Receive Date: 20070430
  Receipt Date: 20060907
  Transmission Date: 20071010
  Serious: No
  Sender: FDA-Public Use
  Company Number: 2006UW13021

PATIENT
  Age: 73 Year
  Sex: Female
  Weight: 52.2 kg

DRUGS (8)
  1. NEXIUM [Suspect]
     Indication: GASTROOESOPHAGEAL REFLUX DISEASE
     Route: 048
  2. NEXIUM [Suspect]
     Route: 048
  3. NEXIUM [Suspect]
     Route: 048
  4. THYROID TAB [Concomitant]
  5. ALDACTONE [Concomitant]
  6. ACTONEL [Concomitant]
  7. CALTRATE [Concomitant]
  8. VYTORIN [Concomitant]

REACTIONS (6)
  - ABDOMINAL DISTENSION [None]
  - FATIGUE [None]
  - GASTROOESOPHAGEAL REFLUX DISEASE [None]
  - LARYNGEAL ULCERATION [None]
  - MUCOUS MEMBRANE DISORDER [None]
  - WEIGHT INCREASED [None]
